FAERS Safety Report 6371982-6 (Version None)
Quarter: 2009Q3

REPORT INFORMATION
  Report Type: 
  Country: None (occurrence: None)
  Receive Date: 20090917
  Receipt Date: 20090904
  Transmission Date: 20100115
  Serious: Yes (Hospitalization)
  Sender: FDA-Public Use
  Company Number: ADR19172009

PATIENT
  Age: 39 Year
  Sex: Male

DRUGS (7)
  1. SALBUTAMOL (MFR: UNKNOWN) [Suspect]
     Dosage: 5 MG
     Route: 055
  2. AMOXICILLIN [Concomitant]
  3. CORTICOSTEROID [Concomitant]
  4. HYDROCORTIZONE [Concomitant]
  5. IPRATROPIUM BROMIDE [Concomitant]
  6. MAGNESIUM SULFATE [Concomitant]
  7. PREDNISOLONE [Concomitant]

REACTIONS (7)
  - ASTHMA [None]
  - CONDITION AGGRAVATED [None]
  - DRUG TOXICITY [None]
  - INAPPROPRIATE SCHEDULE OF DRUG ADMINISTRATION [None]
  - LACTIC ACIDOSIS [None]
  - RESPIRATORY ACIDOSIS [None]
  - RESPIRATORY FAILURE [None]
